FAERS Safety Report 10133160 (Version 1)
Quarter: 2014Q2

REPORT INFORMATION
  Report Type: Spontaneous
  Country: US (occurrence: US)
  Receive Date: 20140428
  Receipt Date: 20140428
  Transmission Date: 20141212
  Serious: Yes (Other)
  Sender: FDA-Public Use
  Company Number: US-TEVA-478238USA

PATIENT
  Age: 1 Year
  Sex: Male

DRUGS (1)
  1. CEFALEXIN [Suspect]
     Dosage: 6 ML DAILY; FOR 10 DAYS

REACTIONS (3)
  - Sudden onset of sleep [Unknown]
  - Lethargy [Unknown]
  - Anxiety [Unknown]
